FAERS Safety Report 8122184-4 (Version None)
Quarter: 2012Q1

REPORT INFORMATION
  Report Type: 
  Country: None (occurrence: None)
  Receive Date: 20120208
  Receipt Date: 20120131
  Transmission Date: 20120608
  Serious: Yes (Other)
  Sender: FDA-Public Use
  Company Number: NL-JNJFOC-20120202558

PATIENT
  Age: 46 Year
  Sex: Male

DRUGS (6)
  1. RIFABUTIN [Concomitant]
     Indication: MYCOBACTERIAL INFECTION
     Route: 065
  2. ETHAMBUTOL HYDROCHLORIDE [Concomitant]
     Indication: MYCOBACTERIAL INFECTION
     Route: 065
  3. CLARITHROMYCIN [Concomitant]
     Indication: MYCOBACTERIAL INFECTION
     Route: 065
  4. RITONAVIR [Suspect]
     Indication: HIV INFECTION
     Route: 065
     Dates: start: 20091119
  5. EMTRICITABINE/TENOFOVIR DISOPROXIL FUMARATE [Suspect]
     Indication: HIV INFECTION
     Route: 065
  6. DARUNAVIR [Suspect]
     Indication: HIV INFECTION
     Route: 048
     Dates: start: 20091119

REACTIONS (2)
  - BLOOD HIV RNA INCREASED [None]
  - AIDS ENCEPHALOPATHY [None]
